FAERS Safety Report 6782834-1 (Version None)
Quarter: 2010Q2

REPORT INFORMATION
  Report Type: 
  Country: None (occurrence: None)
  Receive Date: 20100617
  Receipt Date: 20100603
  Transmission Date: 20101027
  Serious: Yes (Hospitalization)
  Sender: FDA-Public Use
  Company Number: 011414

PATIENT
  Sex: Female
  Weight: 73 kg

DRUGS (9)
  1. CIMZIA [Suspect]
     Indication: CROHN'S DISEASE
     Dosage: SUBCUTANEOUS
     Route: 058
     Dates: start: 20091123
  2. PREDNISONE [Concomitant]
  3. METHOTREXATE [Concomitant]
  4. LOPERAMIDE [Concomitant]
  5. IBUPROFEN [Concomitant]
  6. ACETAMINOPHEN [Concomitant]
  7. AMITRIPTYLINE [Concomitant]
  8. ALBUTEROL [Concomitant]
  9. ALTEPLASE [Concomitant]

REACTIONS (4)
  - HEADACHE [None]
  - NAUSEA [None]
  - STAPHYLOCOCCAL BACTERAEMIA [None]
  - VOMITING [None]
